FAERS Safety Report 14303623 (Version 3)
Quarter: 2018Q4

REPORT INFORMATION
  Report Type: Spontaneous
  Country: US (occurrence: US)
  Receive Date: 20171219
  Receipt Date: 20181214
  Transmission Date: 20190204
  Serious: Yes (Hospitalization, Other)
  Sender: FDA-Public Use
  Company Number: US-OTSUKA-2017_011156

PATIENT
  Age: 60 Year
  Sex: Female

DRUGS (11)
  1. ABILIFY [Suspect]
     Active Substance: ARIPIPRAZOLE
     Indication: BIPOLAR DISORDER
     Dosage: 15 MG, QD
     Route: 048
     Dates: start: 2004
  2. ABILIFY [Suspect]
     Active Substance: ARIPIPRAZOLE
     Dosage: 30 MG, QD
     Route: 048
     Dates: end: 201509
  3. LAMICTAL [Concomitant]
     Active Substance: LAMOTRIGINE
     Indication: BIPOLAR DISORDER
     Dosage: 200 MG, QD
     Route: 048
     Dates: start: 2001
  4. ARIPIPRAZOLE. [Concomitant]
     Active Substance: ARIPIPRAZOLE
     Indication: PRODUCT USED FOR UNKNOWN INDICATION
     Dosage: UNK
     Route: 065
     Dates: start: 201506, end: 20150909
  5. SYNTHROID [Concomitant]
     Active Substance: LEVOTHYROXINE SODIUM
     Indication: BASEDOW^S DISEASE
     Dosage: 150 ?G, UNK
     Route: 065
     Dates: start: 2005
  6. COPAXONE [Concomitant]
     Active Substance: GLATIRAMER ACETATE
     Indication: MULTIPLE SCLEROSIS
     Dosage: UNK,  (40 MG/ML)
     Route: 065
     Dates: start: 2014
  7. DETROL [Concomitant]
     Active Substance: TOLTERODINE TARTRATE
     Indication: POLLAKIURIA
     Dosage: 2 MG, UNK
     Route: 065
     Dates: start: 2013
  8. CELEXA [Concomitant]
     Active Substance: CITALOPRAM HYDROBROMIDE
     Indication: DEPRESSION
     Dosage: 20 MG, QD
     Route: 048
     Dates: start: 1999
  9. ABILIFY [Suspect]
     Active Substance: ARIPIPRAZOLE
     Dosage: 20 MG, QD
     Route: 048
  10. BENICAR HCT [Concomitant]
     Active Substance: HYDROCHLOROTHIAZIDE\OLMESARTAN MEDOXOMIL
     Indication: HYPERTENSION
     Dosage: UNK, (40/12.5 MG)
     Route: 065
     Dates: start: 2010
  11. LIPITOR [Concomitant]
     Active Substance: ATORVASTATIN CALCIUM
     Indication: BLOOD CHOLESTEROL
     Dosage: 20 MG, UNK
     Route: 065
     Dates: start: 2012

REACTIONS (25)
  - Depression [Unknown]
  - Tachyphrenia [Unknown]
  - Suicidal ideation [Unknown]
  - Theft [Unknown]
  - Rib fracture [Recovering/Resolving]
  - Asthenia [Unknown]
  - Condition aggravated [Recovered/Resolved]
  - Personal relationship issue [Unknown]
  - Logorrhoea [Unknown]
  - Economic problem [Unknown]
  - Feeling guilty [Unknown]
  - Obsessive-compulsive disorder [Recovered/Resolved]
  - Appetite disorder [Unknown]
  - Impulsive behaviour [Unknown]
  - Bankruptcy [Unknown]
  - Mental disorder [Unknown]
  - Mania [Unknown]
  - Fall [Unknown]
  - Gambling disorder [Recovered/Resolved]
  - Job dissatisfaction [Unknown]
  - Anhedonia [Unknown]
  - Abnormal behaviour [Unknown]
  - Euphoric mood [Unknown]
  - Emotional distress [Unknown]
  - Depressed mood [Unknown]

NARRATIVE: CASE EVENT DATE: 20020103
